FAERS Safety Report 8907529 (Version 2)
Quarter: 2012Q4

REPORT INFORMATION
  Report Type: 
  Country: JP (occurrence: JP)
  Receive Date: 20121114
  Receipt Date: 20121116
  Transmission Date: 20130627
  Serious: Yes (Other)
  Sender: FDA-Public Use
  Company Number: JP-PFIZER INC-2012282926

PATIENT
  Sex: Female

DRUGS (1)
  1. JZOLOFT [Suspect]
     Dosage: UNK
     Dates: end: 2011

REACTIONS (17)
  - Renal impairment [Unknown]
  - Muscular weakness [Unknown]
  - Dysstasia [Unknown]
  - Pain in extremity [Unknown]
  - Gait disturbance [Unknown]
  - Oedema peripheral [Unknown]
  - Feeling abnormal [Unknown]
  - Muscle rigidity [Unknown]
  - Haemoglobin increased [Unknown]
  - Haematocrit increased [Unknown]
  - Red blood cell count increased [Unknown]
  - Blood lactate dehydrogenase increased [Unknown]
  - Blood alkaline phosphatase increased [Unknown]
  - White blood cell count increased [Unknown]
  - Blood urea increased [Unknown]
  - Urine odour abnormal [Unknown]
  - Chromaturia [Unknown]
